FAERS Safety Report 4646044-6 (Version None)
Quarter: 2005Q2

REPORT INFORMATION
  Report Type: 
  Country: None (occurrence: None)
  Receive Date: 20050422
  Receipt Date: 20050422
  Transmission Date: 20051028
  Serious: Yes (Hospitalization)
  Sender: FDA-Public Use
  Company Number: None

PATIENT
  Age: 63 Year
  Sex: Male

DRUGS (6)
  1. CETUXIMAB [Suspect]
  2. FENTANYL [Concomitant]
  3. MS CONTIN [Concomitant]
  4. MEGACE [Concomitant]
  5. LOMOTIL [Concomitant]
  6. TESSALON [Concomitant]

REACTIONS (1)
  - HAEMORRHAGE [None]
